FAERS Safety Report 7166143-7 (Version None)
Quarter: 2010Q4

REPORT INFORMATION
  Report Type: 
  Country: None (occurrence: None)
  Receive Date: 20101216
  Receipt Date: 20101206
  Transmission Date: 20110411
  Serious: No
  Sender: FDA-Public Use
  Company Number: US-ELI_LILLY_AND_COMPANY-US201009001486

PATIENT
  Sex: Female
  Weight: 76.19 kg

DRUGS (13)
  1. HUMALOG [Suspect]
     Indication: DIABETES MELLITUS
     Dosage: 10 U, 3/D
     Dates: start: 20071218
  2. LANTUS [Concomitant]
     Dosage: 62 U, DAILY (1/D)
  3. ASPIRIN [Concomitant]
     Dosage: 81 MG, DAILY (1/D)
  4. BENADRYL [Concomitant]
     Dosage: UNK, AS NEEDED
  5. DIOVAN [Concomitant]
     Dosage: 160 MG, DAILY (1/D)
  6. FEXOFENADINE HCL [Concomitant]
     Dosage: 60 G, AS NEEDED
  7. HYDREA [Concomitant]
     Dosage: 500 MG, 2/D
  8. LEVOTHYROXINE [Concomitant]
     Dosage: 100 UG, DAILY (1/D)
  9. LISINOPRIL [Concomitant]
     Dosage: 40 MG, DAILY (1/D)
  10. NEXIUM [Concomitant]
     Dosage: 40 MG, DAILY (1/D)
  11. PLAVIX [Concomitant]
     Dosage: 75 MG, DAILY (1/D)
  12. SIMVASTATIN [Concomitant]
     Dosage: 20 MG, DAILY (1/D)
  13. VITAMIN B-12 [Concomitant]
     Dosage: 1000 MG, DAILY (1/D)

REACTIONS (1)
  - SCLERAL HAEMORRHAGE [None]
